FAERS Safety Report 26078521 (Version 2)
Quarter: 2025Q4

REPORT INFORMATION
  Report Type: Spontaneous
  Country: US (occurrence: US)
  Receive Date: 20251123
  Receipt Date: 20251202
  Transmission Date: 20260118
  Serious: Yes (Other)
  Sender: AUROBINDO
  Company Number: US-MLMSERVICE-20251107-PI701649-00218-2

PATIENT
  Age: 2 Year
  Sex: Female

DRUGS (1)
  1. METHOTREXATE [Suspect]
     Active Substance: METHOTREXATE
     Indication: B-cell type acute leukaemia
     Dosage: UNK

REACTIONS (4)
  - Facial paresis [Unknown]
  - Muscular weakness [Unknown]
  - Aphasia [Unknown]
  - Moyamoya disease [Unknown]
